FAERS Safety Report 20721742 (Version 9)
Quarter: 2022Q3

REPORT INFORMATION
  Report Type: Report from Study
  Country: DE (occurrence: DE)
  Receive Date: 20220418
  Receipt Date: 20220811
  Transmission Date: 20221027
  Serious: Yes (Hospitalization, Other)
  Sender: FDA-Public Use
  Company Number: DE-GILEAD-2021-0542021

PATIENT
  Age: 39 Year
  Sex: Male
  Weight: 90 kg

DRUGS (6)
  1. SOFOSBUVIR\VELPATASVIR\VOXILAPREVIR [Suspect]
     Active Substance: SOFOSBUVIR\VELPATASVIR\VOXILAPREVIR
     Indication: Chronic hepatitis C
     Dosage: 600 MG, QD
     Route: 048
     Dates: start: 20210526, end: 20210818
  2. PROPRANOLOL HYDROCHLORIDE [Concomitant]
     Active Substance: PROPRANOLOL HYDROCHLORIDE
     Dosage: 40 MG
  3. SPIRONOLACTONE [Concomitant]
     Active Substance: SPIRONOLACTONE
     Dosage: 100 MG
  4. FUROSEMIDE [Concomitant]
     Active Substance: FUROSEMIDE
     Dosage: 40 MG
     Dates: start: 20210815
  5. FOLIC ACID [Concomitant]
     Active Substance: FOLIC ACID
     Dosage: 5 MG
  6. TORSEMIDE [Concomitant]
     Active Substance: TORSEMIDE
     Dosage: 10 MG
     Dates: start: 20210815

REACTIONS (9)
  - Ascites [Unknown]
  - Ascites [Not Recovered/Not Resolved]
  - Ascites [Unknown]
  - Ascites [Recovered/Resolved]
  - Waist circumference increased [Not Recovered/Not Resolved]
  - Hepatic cirrhosis [Unknown]
  - Nausea [Recovered/Resolved]
  - Fatigue [Not Recovered/Not Resolved]
  - Product dose omission issue [Recovered/Resolved]

NARRATIVE: CASE EVENT DATE: 20210526
